FAERS Safety Report 25204250 (Version 1)
Quarter: 2025Q2

REPORT INFORMATION
  Report Type: Spontaneous
  Country: FR (occurrence: FR)
  Receive Date: 20250416
  Receipt Date: 20250416
  Transmission Date: 20250717
  Serious: Yes (Hospitalization)
  Sender: MYLAN
  Company Number: None

PATIENT
  Age: 37 Year
  Sex: Female

DRUGS (20)
  1. SERTRALINE [Suspect]
     Active Substance: SERTRALINE HYDROCHLORIDE
     Indication: Depressed mood
     Dosage: 50 MILLIGRAM, QD
     Dates: start: 20241213
  2. SERTRALINE [Suspect]
     Active Substance: SERTRALINE HYDROCHLORIDE
     Dosage: 50 MILLIGRAM, QD
     Route: 048
     Dates: start: 20241213
  3. SERTRALINE [Suspect]
     Active Substance: SERTRALINE HYDROCHLORIDE
     Dosage: 50 MILLIGRAM, QD
     Route: 048
     Dates: start: 20241213
  4. SERTRALINE [Suspect]
     Active Substance: SERTRALINE HYDROCHLORIDE
     Dosage: 50 MILLIGRAM, QD
     Dates: start: 20241213
  5. CYAMEMAZINE [Suspect]
     Active Substance: CYAMEMAZINE
     Indication: Depressed mood
     Dosage: 100 MILLIGRAM, QD
     Dates: start: 20241213
  6. CYAMEMAZINE [Suspect]
     Active Substance: CYAMEMAZINE
     Dosage: 100 MILLIGRAM, QD
     Route: 048
     Dates: start: 20241213
  7. CYAMEMAZINE [Suspect]
     Active Substance: CYAMEMAZINE
     Dosage: 100 MILLIGRAM, QD
     Route: 048
     Dates: start: 20241213
  8. CYAMEMAZINE [Suspect]
     Active Substance: CYAMEMAZINE
     Dosage: 100 MILLIGRAM, QD
     Dates: start: 20241213
  9. DIAZEPAM [Concomitant]
     Active Substance: DIAZEPAM
  10. DIAZEPAM [Concomitant]
     Active Substance: DIAZEPAM
     Route: 065
  11. DIAZEPAM [Concomitant]
     Active Substance: DIAZEPAM
     Route: 065
  12. DIAZEPAM [Concomitant]
     Active Substance: DIAZEPAM
  13. ZOPICLONE [Concomitant]
     Active Substance: ZOPICLONE
  14. ZOPICLONE [Concomitant]
     Active Substance: ZOPICLONE
     Route: 065
  15. ZOPICLONE [Concomitant]
     Active Substance: ZOPICLONE
     Route: 065
  16. ZOPICLONE [Concomitant]
     Active Substance: ZOPICLONE
  17. NICOPATCH [Concomitant]
     Active Substance: NICOTINE
  18. NICOPATCH [Concomitant]
     Active Substance: NICOTINE
     Route: 065
  19. NICOPATCH [Concomitant]
     Active Substance: NICOTINE
     Route: 065
  20. NICOPATCH [Concomitant]
     Active Substance: NICOTINE

REACTIONS (2)
  - Hepatic cytolysis [Recovered/Resolved]
  - Gamma-glutamyltransferase increased [Recovered/Resolved]

NARRATIVE: CASE EVENT DATE: 20241229
